FAERS Safety Report 5105720-1 (Version None)
Quarter: 2006Q3

REPORT INFORMATION
  Report Type: 
  Country: None (occurrence: None)
  Receive Date: 20060915
  Receipt Date: 20060905
  Transmission Date: 20061208
  Serious: Yes (Death, Hospitalization)
  Sender: FDA-Public Use
  Company Number: AU-SANOFI-SYNTHELABO-A01200607197

PATIENT
  Sex: Male

DRUGS (1)
  1. STILNOX [Suspect]
     Indication: OVERDOSE
     Dosage: 20 TO 30 TABLETS ONCE
     Route: 048

REACTIONS (3)
  - COMPLETED SUICIDE [None]
  - INTENTIONAL OVERDOSE [None]
  - SOMNOLENCE [None]
